FAERS Safety Report 8906202 (Version 1)
Quarter: 2012Q4

REPORT INFORMATION
  Report Type: Spontaneous
  Country: US (occurrence: None)
  Receive Date: 20121107
  Receipt Date: 20121107
  Transmission Date: 20130627
  Serious: Yes (Other)
  Sender: FDA-Public Use
  Company Number: US-BANPHARM-20120299

PATIENT
  Age: 75 Year
  Sex: Female
  Weight: 68.04 kg

DRUGS (1)
  1. ALEVE LIQUID GELS 220 MG [Suspect]
     Dosage: 1 capsule
     Route: 048
     Dates: start: 20121017, end: 20121017

REACTIONS (3)
  - Rash [None]
  - Rash pustular [None]
  - Rash pruritic [None]
